FAERS Safety Report 4654491-1 (Version None)
Quarter: 2005Q2

REPORT INFORMATION
  Report Type: 
  Country: None (occurrence: None)
  Receive Date: 20050504
  Receipt Date: 20050504
  Transmission Date: 20051028
  Serious: Yes (Hospitalization)
  Sender: FDA-Public Use
  Company Number: None

PATIENT
  Age: 55 Year
  Sex: Male
  Weight: 121.564 kg

DRUGS (2)
  1. IFOSFAMIDE [Suspect]
     Indication: SARCOMA
     Dosage: 5500 MG INTRAVENOU
     Route: 042
     Dates: start: 20050418, end: 20050421
  2. EPIRUBICIN [Suspect]
     Indication: SARCOMA
     Dosage: 66 MG INTRAVENOU
     Route: 042
     Dates: start: 20050421, end: 20050421

REACTIONS (5)
  - DYSPEPSIA [None]
  - DYSPHAGIA [None]
  - FATIGUE [None]
  - HICCUPS [None]
  - NAUSEA [None]
